FAERS Safety Report 14593433 (Version 4)
Quarter: 2018Q3

REPORT INFORMATION
  Report Type: Spontaneous
  Country: FR (occurrence: FR)
  Receive Date: 20180302
  Receipt Date: 20180723
  Transmission Date: 20181010
  Serious: Yes (Other)
  Sender: FDA-Public Use
  Company Number: FR-PFIZER INC-2018081799

PATIENT
  Age: 43 Year
  Sex: Male

DRUGS (5)
  1. FLANID [Concomitant]
     Active Substance: TIAPROFENIC ACID
     Dosage: UNK
  2. SERTRALINE [Suspect]
     Active Substance: SERTRALINE HYDROCHLORIDE
     Dosage: UNK
  3. SPIRAMYCINE [Concomitant]
     Active Substance: SPIRAMYCIN
     Dosage: UNK
  4. ZOLOFT [Suspect]
     Active Substance: SERTRALINE HYDROCHLORIDE
     Dosage: 100 MG, DAILY
  5. SERTRALINE [Suspect]
     Active Substance: SERTRALINE HYDROCHLORIDE
     Dosage: 100 MG, DAILY

REACTIONS (7)
  - Increased bronchial secretion [Unknown]
  - Lactose intolerance [Unknown]
  - Tonsillar hypertrophy [Unknown]
  - Salivary gland enlargement [Unknown]
  - Otitis media [Unknown]
  - Tooth abscess [Unknown]
  - Upper respiratory tract infection [Unknown]
